FAERS Safety Report 7602139-6 (Version None)
Quarter: 2011Q3

REPORT INFORMATION
  Report Type: 
  Country: None (occurrence: None)
  Receive Date: 20110711
  Receipt Date: 20110703
  Transmission Date: 20111222
  Serious: Yes (Hospitalization, Other)
  Sender: FDA-Public Use
  Company Number: PHHO2011US10454

PATIENT
  Sex: Female
  Weight: 93.9 kg

DRUGS (18)
  1. GEMCITABINE [Suspect]
     Indication: BILE DUCT CANCER
     Dosage: 600 MG/M2, DAYS 1+8
     Route: 042
     Dates: start: 20110512
  2. CISPLATIN [Suspect]
     Indication: BILE DUCT CANCER
     Dosage: 12.5 MG/M2, DAYS 1+8
     Route: 042
     Dates: start: 20110512
  3. VANCOMYCIN [Suspect]
  4. COLACE [Concomitant]
  5. SENOKOT [Concomitant]
  6. GARLIC [Concomitant]
  7. AFINITOR [Suspect]
     Indication: BILE DUCT CANCER
     Dosage: 5 MG, M-W-F
     Route: 048
     Dates: start: 20110512
  8. FISH OIL [Concomitant]
  9. DEXAMETHASONE [Concomitant]
  10. VITAMIN B6 [Concomitant]
  11. COMPAZINE [Concomitant]
  12. SELENIUM [Concomitant]
  13. VITAMIN E [Concomitant]
  14. ESTER-C [Concomitant]
  15. MULTI-VITAMIN [Concomitant]
  16. POLYETHYLENE GLYCOL [Concomitant]
  17. OXYCODONE HCL [Concomitant]
  18. PRILOSEC [Concomitant]

REACTIONS (20)
  - THROMBOCYTOPENIA [None]
  - OCULAR ICTERUS [None]
  - ABDOMINAL PAIN [None]
  - BLOOD BILIRUBIN INCREASED [None]
  - TACHYCARDIA [None]
  - RENAL FAILURE [None]
  - BILIRUBIN CONJUGATED INCREASED [None]
  - ALANINE AMINOTRANSFERASE INCREASED [None]
  - PYREXIA [None]
  - FLANK PAIN [None]
  - LEUKOPENIA [None]
  - DILATATION INTRAHEPATIC DUCT ACQUIRED [None]
  - DIARRHOEA [None]
  - ENTEROCOCCUS TEST POSITIVE [None]
  - PORTAL VEIN THROMBOSIS [None]
  - NEUTROPENIA [None]
  - ANAEMIA [None]
  - ASPARTATE AMINOTRANSFERASE INCREASED [None]
  - NAUSEA [None]
  - CHOLANGITIS [None]
